FAERS Safety Report 21051828 (Version 1)
Quarter: 2022Q3

REPORT INFORMATION
  Report Type: Report from Study
  Country: US (occurrence: US)
  Receive Date: 20220707
  Receipt Date: 20220707
  Transmission Date: 20221027
  Serious: Yes (Other)
  Sender: FDA-Public Use
  Company Number: US-BAYER-2022A091384

PATIENT
  Age: 55 Year
  Sex: Female

DRUGS (1)
  1. ASPIRIN [Suspect]
     Active Substance: ASPIRIN
     Dosage: 325 MG, BID

REACTIONS (2)
  - Eosinophilia [Recovered/Resolved]
  - Aspirin-exacerbated respiratory disease [Recovered/Resolved]
